FAERS Safety Report 12894523 (Version 2)
Quarter: 2017Q1

REPORT INFORMATION
  Report Type: Spontaneous
  Country: US (occurrence: US)
  Receive Date: 20161028
  Receipt Date: 20170126
  Transmission Date: 20170428
  Serious: Yes (Other)
  Sender: FDA-Public Use
  Company Number: US-VALIDUS PHARMACEUTICALS LLC-US-2016VAL000136

PATIENT

DRUGS (1)
  1. TRENTAL [Suspect]
     Active Substance: PENTOXIFYLLINE
     Indication: STASIS DERMATITIS
     Dosage: UNK
     Dates: start: 2012

REACTIONS (1)
  - Haemorrhage [Unknown]
